FAERS Safety Report 7525464-6 (Version None)
Quarter: 2011Q2

REPORT INFORMATION
  Report Type: 
  Country: None (occurrence: None)
  Receive Date: 20110606
  Receipt Date: 20110526
  Transmission Date: 20111010
  Serious: Yes (Hospitalization)
  Sender: FDA-Public Use
  Company Number: US-BAXTER-2011BH017541

PATIENT
  Age: 39 Year
  Sex: Female

DRUGS (3)
  1. DIANEAL [Suspect]
     Indication: PERITONEAL DIALYSIS
     Route: 033
     Dates: start: 20110523
  2. DIANEAL [Suspect]
     Route: 033
     Dates: start: 20110506
  3. DIANEAL [Suspect]
     Route: 033
     Dates: start: 20110503

REACTIONS (3)
  - DEVICE RELATED INFECTION [None]
  - PERITONITIS BACTERIAL [None]
  - MUSCLE STRAIN [None]
